FAERS Safety Report 18566883 (Version 1)
Quarter: 2020Q4

REPORT INFORMATION
  Report Type: Spontaneous
  Country: JP (occurrence: JP)
  Receive Date: 20201201
  Receipt Date: 20201201
  Transmission Date: 20210114
  Serious: Yes (Death)
  Sender: FDA-Public Use
  Company Number: JP-JNJFOC-20201151409

PATIENT
  Sex: Female

DRUGS (1)
  1. UPTRAVI [Suspect]
     Active Substance: SELEXIPAG
     Indication: PULMONARY TUMOUR THROMBOTIC MICROANGIOPATHY
     Route: 048
     Dates: start: 20201105, end: 20201112

REACTIONS (3)
  - Product use in unapproved indication [Unknown]
  - Respiratory failure [Fatal]
  - Off label use [Unknown]

NARRATIVE: CASE EVENT DATE: 2020
